FAERS Safety Report 6467495-3 (Version None)
Quarter: 2009Q4

REPORT INFORMATION
  Report Type: 
  Country: None (occurrence: None)
  Receive Date: 20091202
  Receipt Date: 20091118
  Transmission Date: 20100525
  Serious: No
  Sender: FDA-Public Use
  Company Number: US-B.I. PHARMACEUTICALS,INC./RIDGEFIELD-2009-BP-13415BP

PATIENT
  Sex: Male

DRUGS (2)
  1. ATROVENT HFA [Suspect]
     Indication: EMPHYSEMA
     Dosage: 17 MCG
     Route: 055
     Dates: start: 20091014, end: 20091030
  2. ATROVENT HFA [Suspect]
     Indication: PULMONARY CONGESTION
     Dosage: 17 MCG
     Route: 055
     Dates: start: 20080101, end: 20080101

REACTIONS (2)
  - PRURITUS [None]
  - RASH ERYTHEMATOUS [None]
